FAERS Safety Report 13583099 (Version 3)
Quarter: 2018Q1

REPORT INFORMATION
  Report Type: Spontaneous
  Country: CA (occurrence: CA)
  Receive Date: 20170525
  Receipt Date: 20180129
  Transmission Date: 20180508
  Serious: Yes (Other)
  Sender: FDA-Public Use
  Company Number: CA-BAUSCH-BL-2017-016884

PATIENT
  Age: 49 Year
  Sex: Male

DRUGS (1)
  1. GLUMETZA [Suspect]
     Active Substance: METFORMIN HYDROCHLORIDE
     Indication: TYPE 2 DIABETES MELLITUS
     Dosage: EXTENDED RELEASE
     Route: 048

REACTIONS (3)
  - Intestinal operation [Recovered/Resolved]
  - Weight decreased [Recovered/Resolved]
  - Medication residue present [Recovered/Resolved]
